FAERS Safety Report 5163025-7 (Version None)
Quarter: 2006Q4

REPORT INFORMATION
  Report Type: 
  Country: None (occurrence: None)
  Receive Date: 20061201
  Receipt Date: 20061123
  Transmission Date: 20070319
  Serious: Yes (Hospitalization)
  Sender: FDA-Public Use
  Company Number: IT-ABBOTT-06P-083-0351465-00

PATIENT
  Sex: Female
  Weight: 74 kg

DRUGS (6)
  1. HUMIRA [Suspect]
     Indication: RHEUMATOID ARTHRITIS
     Route: 058
     Dates: start: 20051011, end: 20060522
  2. HUMIRA [Suspect]
     Route: 058
     Dates: start: 20060920
  3. HUMIRA [Suspect]
     Dates: start: 20050912, end: 20051010
  4. CYCLOSPORINE [Concomitant]
     Indication: RHEUMATOID ARTHRITIS
     Dates: start: 19990204, end: 20050912
  5. HYDROXYCHLOROQUINE PHOSPHATE [Concomitant]
     Indication: RHEUMATOID ARTHRITIS
     Dates: start: 19961114, end: 19990204
  6. DEFLAZACORT [Concomitant]
     Indication: RHEUMATOID ARTHRITIS
     Dates: start: 20060126

REACTIONS (6)
  - ADVERSE EVENT [None]
  - FALL [None]
  - FEMUR FRACTURE [None]
  - LIMB DEFORMITY [None]
  - PAIN IN EXTREMITY [None]
  - UNEVALUABLE EVENT [None]
